FAERS Safety Report 17463544 (Version 1)
Quarter: 2020Q1

REPORT INFORMATION
  Report Type: Spontaneous
  Country: SE (occurrence: SE)
  Receive Date: 20200226
  Receipt Date: 20200226
  Transmission Date: 20200409
  Serious: Yes (Other)
  Sender: FDA-Public Use
  Company Number: NVSC2020SE050458

PATIENT
  Age: 77 Year
  Sex: Female
  Weight: 72 kg

DRUGS (3)
  1. LEVAXIN [Concomitant]
     Active Substance: LEVOTHYROXINE SODIUM
     Indication: PRODUCT USED FOR UNKNOWN INDICATION
     Dosage: UNK
     Route: 065
     Dates: start: 20040901
  2. NEVANAC [Suspect]
     Active Substance: NEPAFENAC
     Indication: MACULAR OEDEMA
     Dosage: 4 DF, QD (1 DROPPE 4 GANGER DAGLIGEN)
     Route: 065
     Dates: start: 20190625
  3. ISOPTO-MAXIDEX (ALC) [Suspect]
     Active Substance: DEXAMETHASONE
     Indication: MACULAR OEDEMA
     Dosage: 4 DF, QD (1 DROPPE 4 GANGER DAGLIGEN, EYE DROPS, SUSPENSION)
     Route: 065
     Dates: start: 20190625, end: 20191118

REACTIONS (1)
  - Eyelid ptosis [Not Recovered/Not Resolved]

NARRATIVE: CASE EVENT DATE: 201907
